FAERS Safety Report 10037302 (Version 1)
Quarter: 2014Q1

REPORT INFORMATION
  Report Type: Spontaneous
  Country: US (occurrence: None)
  Receive Date: 20140306
  Receipt Date: 20140306
  Transmission Date: 20141002
  Serious: Yes (Hospitalization)
  Sender: FDA-Public Use
  Company Number: 163-21880-13083622

PATIENT
  Age: 60 Year
  Sex: Female

DRUGS (17)
  1. REVLIMID (LENALIDOMIDE) (25 MILLIGRAM, CAPSULES) [Suspect]
     Indication: PLASMA CELL MYELOMA
     Route: 048
     Dates: start: 201008
  2. ZYPREXA (OLANZAPINE) (UNKNOWN) [Concomitant]
  3. GEMFIBROZIL (GEMFIBROZIL) (UNKNOWN) [Concomitant]
  4. DIPHENOXYLATE/ATROPINE (LOMOTIL) (UNKNOWN) [Concomitant]
  5. PANTOPRAZOLE (PANTOPRAZOLE) (UNKNOWN) [Concomitant]
  6. PENICILLIN VK (PHENOXYMETHYLPENICILLIN POTASSIUM) (UNKNOWN) [Concomitant]
  7. FLUOXETINE HCL (FLUOXETINE HYDROCHLORIDE) (UNKNOWN) [Concomitant]
  8. LORAZEPAM (LORAZEPAM) (UNKNOWN) [Concomitant]
  9. ACYCLOVIR (ACICLOVIR) (UNKNOWN) [Concomitant]
  10. ALPRAZOLAM (ALPRAZOLAM) (UNKNOWN) [Concomitant]
  11. NIFEDIPINE (NIFEDIPINE) (UNKNOWN) [Concomitant]
  12. ASPIRINE (ACETYLSALICYLIC ACID) (UNKNOWN) [Concomitant]
  13. BUPROPION HCL (BUPROPION HYDROCHLORIDE) (UNKNOWN) [Concomitant]
  14. OXYCODONE-ACETAMINOPHEN (OXYCOCET) (UNKNOWN) [Concomitant]
  15. POTASSIUM CL (POTASSIUM CHLORIDE) (UNKNOWN) [Concomitant]
  16. MULTI-B PLUS (MULTIVITAMINS, COMBINATIONS) (UNKNOWN) [Concomitant]
  17. CLARITIN (LORATADINE) (UNKNOWN) [Concomitant]

REACTIONS (2)
  - Pneumonia [None]
  - Sepsis [None]
